FAERS Safety Report 15988487 (Version 2)
Quarter: 2019Q1

REPORT INFORMATION
  Report Type: Report from Study
  Country: US (occurrence: US)
  Receive Date: 20190221
  Receipt Date: 20190304
  Transmission Date: 20190418
  Serious: Yes (Hospitalization, Other)
  Sender: FDA-Public Use
  Company Number: US-AMGEN-USASP2019024707

PATIENT
  Age: 64 Year
  Sex: Female

DRUGS (2)
  1. REPATHA [Suspect]
     Active Substance: EVOLOCUMAB
     Indication: BLOOD CHOLESTEROL INCREASED
     Dosage: 140 MG, Q2WK
     Route: 065
  2. REPATHA [Suspect]
     Active Substance: EVOLOCUMAB
     Indication: HYPERLIPIDAEMIA

REACTIONS (12)
  - Fatigue [Unknown]
  - Alopecia [Unknown]
  - Headache [Unknown]
  - Accidental exposure to product [Unknown]
  - Asthenia [Not Recovered/Not Resolved]
  - Frequent bowel movements [Unknown]
  - Device issue [Unknown]
  - Breast cancer [Unknown]
  - Myocardial infarction [Unknown]
  - Diarrhoea [Unknown]
  - Hepatic lesion [Unknown]
  - Nausea [Unknown]

NARRATIVE: CASE EVENT DATE: 20190210
